FAERS Safety Report 6232183-5 (Version None)
Quarter: 2009Q2

REPORT INFORMATION
  Report Type: 
  Country: None (occurrence: None)
  Receive Date: 20090617
  Receipt Date: 20070905
  Transmission Date: 20091009
  Serious: Yes (Hospitalization, Other)
  Sender: FDA-Public Use
  Company Number: US-ASTRAZENECA-2006UW01927

PATIENT
  Age: 51 Year
  Sex: Female
  Weight: 77.7 kg

DRUGS (11)
  1. SEROQUEL [Suspect]
     Dosage: 25 TO 200 MG
     Route: 048
     Dates: start: 20020625
  2. HYDROCHLOROTHIAZIDE [Concomitant]
     Dosage: 12.5 TO 25 MG
     Dates: start: 20020712
  3. PRILOSEC [Concomitant]
     Route: 048
     Dates: start: 20020702
  4. AMITRIPTLINE HYDROCHLORIDE TAB [Concomitant]
     Route: 048
     Dates: start: 19950907
  5. PROZAC [Concomitant]
     Dosage: 20 TO 40 MG DAILY
     Route: 048
     Dates: start: 19960416
  6. PREMPRO [Concomitant]
     Dosage: 0.625/2.5 MG- DISPENSED
     Dates: start: 20021031
  7. MAXALT [Concomitant]
     Dosage: 10MG 1 TABLET, MAY REPEAT IN 2 HRS. MAXIMUM 3 TABLETS IN 24 HRS
     Route: 048
     Dates: start: 20030422
  8. LISINOPRIL [Concomitant]
     Dates: start: 20040202
  9. ASPIRIN [Concomitant]
     Dosage: 81 MG, 325 MG DAILY
     Dates: start: 20040205
  10. PROTONIX [Concomitant]
     Dosage: 40 MG
     Route: 048
     Dates: start: 20040214
  11. NEXIUM [Concomitant]
     Dosage: 20 TO 40 MG
     Dates: start: 20050104

REACTIONS (4)
  - DIABETES MELLITUS [None]
  - NEUROPATHY PERIPHERAL [None]
  - TYPE 1 DIABETES MELLITUS [None]
  - TYPE 2 DIABETES MELLITUS [None]
